FAERS Safety Report 10589977 (Version 2)
Quarter: 2014Q4

REPORT INFORMATION
  Report Type: Report from Study
  Country: US (occurrence: US)
  Receive Date: 20141118
  Receipt Date: 20141125
  Transmission Date: 20150529
  Serious: Yes (Death, Hospitalization, Other)
  Sender: FDA-Public Use
  Company Number: US-GLAXOSMITHKLINE-US2014GSK014886

PATIENT

DRUGS (3)
  1. PACLITAXEL. [Suspect]
     Active Substance: PACLITAXEL
     Indication: PROSTATE CANCER
     Dosage: 174 MG, WE
     Route: 042
     Dates: start: 20140421, end: 20141006
  2. CARBOPLATIN. [Suspect]
     Active Substance: CARBOPLATIN
     Indication: PROSTATE CANCER
     Dosage: UNK, WE
     Route: 042
  3. PAZOPANIB [Suspect]
     Active Substance: PAZOPANIB
     Indication: PROSTATE CANCER
     Dosage: 600 MG, CYC
     Route: 048
     Dates: start: 20140422, end: 20141017

REACTIONS (2)
  - Dyspnoea [Unknown]
  - Death [Fatal]

NARRATIVE: CASE EVENT DATE: 20141028
